FAERS Safety Report 7736952-1 (Version None)
Quarter: 2011Q3

REPORT INFORMATION
  Report Type: 
  Country: None (occurrence: None)
  Receive Date: 20110902
  Receipt Date: 20110822
  Transmission Date: 20111222
  Serious: Yes (Hospitalization)
  Sender: FDA-Public Use
  Company Number: 2011MA012366

PATIENT
  Age: 54 Year
  Sex: Female

DRUGS (1)
  1. CLIINDAMYCIN PHOSPHATE TOPICAL SOLUTION USP, 1% BASE (ALPHARMA) (CLIND [Suspect]
     Dosage: PO
     Route: 048

REACTIONS (2)
  - FOREIGN BODY ASPIRATION [None]
  - TRACHEITIS [None]
